FAERS Safety Report 13093352 (Version 1)
Quarter: 2017Q1

REPORT INFORMATION
  Report Type: Spontaneous
  Country: US (occurrence: US)
  Receive Date: 20170106
  Receipt Date: 20170106
  Transmission Date: 20170428
  Serious: No
  Sender: FDA-Public Use
  Company Number: US-VIIV HEALTHCARE LIMITED-US2017000875

PATIENT
  Sex: Female

DRUGS (11)
  1. SELZENTRY [Suspect]
     Active Substance: MARAVIROC
     Indication: PRODUCT USED FOR UNKNOWN INDICATION
     Dosage: 300 MG, BID
     Dates: start: 20100816
  2. HYDROCHLOROTHIAZIDE. [Concomitant]
     Active Substance: HYDROCHLOROTHIAZIDE
  3. LAMIVUDINE. [Concomitant]
     Active Substance: LAMIVUDINE
  4. BIOTIN [Concomitant]
     Active Substance: BIOTIN
  5. MELATONIN [Concomitant]
     Active Substance: MELATONIN
  6. ALBUTEROL. [Concomitant]
     Active Substance: ALBUTEROL
  7. MAG OXIDE [Concomitant]
     Active Substance: MAGNESIUM OXIDE
  8. TENOFOVIR [Concomitant]
     Active Substance: TENOFOVIR
  9. DESCOVY [Concomitant]
     Active Substance: EMTRICITABINE\TENOFOVIR ALAFENAMIDE FUMARATE
  10. LYRICA [Concomitant]
     Active Substance: PREGABALIN
  11. ASPIRIN. [Concomitant]
     Active Substance: ASPIRIN

REACTIONS (3)
  - Quality of life decreased [Unknown]
  - Depressed mood [Not Recovered/Not Resolved]
  - Angiolipoma [Unknown]

NARRATIVE: CASE EVENT DATE: 2013
